FAERS Safety Report 11050040 (Version 1)
Quarter: 2015Q2

REPORT INFORMATION
  Report Type: Spontaneous
  Country: US (occurrence: US)
  Receive Date: 20150420
  Receipt Date: 20150420
  Transmission Date: 20150821
  Serious: No
  Sender: FDA-Public Use
  Company Number: US-PURDUE-USA-2014-0119307

PATIENT
  Sex: Female

DRUGS (1)
  1. OXYCODONE HCL TABLETS (RHODES 91-490) [Suspect]
     Active Substance: OXYCODONE HYDROCHLORIDE
     Indication: PAIN
     Dosage: 15 MG, Q3H
     Route: 048
     Dates: start: 20141117

REACTIONS (5)
  - Abdominal discomfort [Unknown]
  - Salivary hypersecretion [Unknown]
  - Nausea [Unknown]
  - Wrong technique in drug usage process [Unknown]
  - Dysgeusia [Unknown]
